FAERS Safety Report 7409160-1 (Version None)
Quarter: 2011Q2

REPORT INFORMATION
  Report Type: 
  Country: None (occurrence: None)
  Receive Date: 20110408
  Receipt Date: 20110408
  Transmission Date: 20111010
  Serious: No
  Sender: FDA-Public Use
  Company Number: None

PATIENT
  Age: 20 Year
  Sex: Female

DRUGS (4)
  1. RIFAMPIN [Suspect]
     Dates: start: 20090710, end: 20090711
  2. ETHAMBUTOL [Suspect]
     Dates: start: 20090710, end: 20090711
  3. PYRAZINAMIDE [Suspect]
     Dates: start: 20090710, end: 20090711
  4. ISONIAZID [Suspect]
     Dates: start: 20090710, end: 20090711

REACTIONS (5)
  - LIVER INJURY [None]
  - RASH [None]
  - ASPARTATE AMINOTRANSFERASE INCREASED [None]
  - ALANINE AMINOTRANSFERASE INCREASED [None]
  - NAUSEA [None]
